FAERS Safety Report 5902016-2 (Version None)
Quarter: 2008Q3

REPORT INFORMATION
  Report Type: 
  Country: None (occurrence: None)
  Receive Date: 20080929
  Receipt Date: 20080917
  Transmission Date: 20090109
  Serious: Yes (Disabling, Other)
  Sender: FDA-Public Use
  Company Number: FR-PFIZER INC-2008079184

PATIENT
  Sex: Female
  Weight: 52 kg

DRUGS (3)
  1. SU-011,248 [Suspect]
     Indication: BREAST CANCER
     Dosage: DAILY DOSE:37.5MG-FREQ:DAILY
     Route: 048
     Dates: start: 20080722, end: 20080820
  2. XELODA [Suspect]
     Indication: BREAST CANCER
     Route: 048
     Dates: start: 20080722
  3. ZOLADEX [Concomitant]
     Dates: start: 20020101

REACTIONS (1)
  - RENAL INFARCT [None]
